FAERS Safety Report 20564683 (Version 7)
Quarter: 2023Q4

REPORT INFORMATION
  Report Type: Spontaneous
  Country: US (occurrence: US)
  Receive Date: 20220308
  Receipt Date: 20231011
  Transmission Date: 20240110
  Serious: Yes (Disabling, Other)
  Sender: FDA-Public Use
  Company Number: US-ORGANON-O2203USA000664

PATIENT
  Sex: Female

DRUGS (1)
  1. SINGULAIR [Suspect]
     Active Substance: MONTELUKAST SODIUM
     Dosage: TAKE 1 TABLET (10 MG) BY ORAL ROUTE ONCE DAILY IN THE EVENING.
     Route: 048
     Dates: start: 1994, end: 20210426

REACTIONS (50)
  - Neuropsychological symptoms [Not Recovered/Not Resolved]
  - Panic attack [Not Recovered/Not Resolved]
  - Confusional state [Not Recovered/Not Resolved]
  - Abnormal behaviour [Not Recovered/Not Resolved]
  - Major depression [Recovering/Resolving]
  - Crying [Unknown]
  - Post-traumatic stress disorder [Not Recovered/Not Resolved]
  - Affective disorder [Unknown]
  - Deafness unilateral [Not Recovered/Not Resolved]
  - Choking [Unknown]
  - Anxiety disorder [Not Recovered/Not Resolved]
  - Tremor [Not Recovered/Not Resolved]
  - Suicidal ideation [Not Recovered/Not Resolved]
  - Irritability [Unknown]
  - Palpitations [Unknown]
  - Mental disorder [Unknown]
  - Abulia [Unknown]
  - Dissociative disorder [Recovered/Resolved]
  - Feeling guilty [Unknown]
  - Frustration tolerance decreased [Unknown]
  - Migraine [Unknown]
  - Obsessive-compulsive disorder [Unknown]
  - Ulcer [Unknown]
  - Throat irritation [Unknown]
  - Amnesia [Unknown]
  - Nervousness [Unknown]
  - Pain [Unknown]
  - Nervousness [Not Recovered/Not Resolved]
  - Gastrointestinal disorder [Unknown]
  - Hyperventilation [Unknown]
  - Complex regional pain syndrome [Unknown]
  - Pelvic pain [Unknown]
  - Chronic fatigue syndrome [Not Recovered/Not Resolved]
  - Asthma [Unknown]
  - Irritable bowel syndrome [Unknown]
  - Eating disorder [Unknown]
  - Tinnitus [Unknown]
  - Anger [Unknown]
  - Nightmare [Not Recovered/Not Resolved]
  - Vomiting [Recovered/Resolved]
  - Nausea [Unknown]
  - Aggression [Unknown]
  - Muscle spasms [Unknown]
  - Agitation [Unknown]
  - Insomnia [Unknown]
  - Restlessness [Unknown]
  - Hypoaesthesia [Unknown]
  - Paraesthesia [Unknown]
  - Dizziness [Unknown]
  - Abdominal pain [Unknown]

NARRATIVE: CASE EVENT DATE: 20010101
